FAERS Safety Report 9788869 (Version 2)
Quarter: 2014Q1

REPORT INFORMATION
  Report Type: Spontaneous
  Country: JP (occurrence: JP)
  Receive Date: 20131230
  Receipt Date: 20140114
  Transmission Date: 20141002
  Serious: Yes (Hospitalization)
  Sender: FDA-Public Use
  Company Number: JP-GLAXOSMITHKLINE-B0951216A

PATIENT
  Age: 73 Year
  Sex: Female

DRUGS (4)
  1. ZOVIRAX [Suspect]
     Indication: HERPES ZOSTER
     Dosage: 800MG SEE DOSAGE TEXT
     Route: 048
     Dates: start: 20131128, end: 20131201
  2. ZOVIRAX [Suspect]
     Indication: HERPES ZOSTER
     Dosage: 800MG SEE DOSAGE TEXT
     Route: 048
     Dates: start: 20131128, end: 20131201
  3. CALONAL [Concomitant]
     Indication: TRIGEMINAL NEURALGIA
     Dosage: 400MG THREE TIMES PER DAY
     Route: 048
     Dates: start: 20131128, end: 20131201
  4. VIDARABINE [Concomitant]
     Indication: TRIGEMINAL NEURALGIA
     Route: 061
     Dates: start: 20131128, end: 20131201

REACTIONS (3)
  - Delirium [Recovered/Resolved]
  - Toxic encephalopathy [Recovered/Resolved]
  - Hallucination [Recovered/Resolved]
